FAERS Safety Report 5893302-3 (Version None)
Quarter: 2008Q3

REPORT INFORMATION
  Report Type: 
  Country: None (occurrence: None)
  Receive Date: 20080923
  Receipt Date: 20080917
  Transmission Date: 20090109
  Serious: Yes (Other)
  Sender: FDA-Public Use
  Company Number: B0513092A

PATIENT
  Age: 43 Year
  Sex: Male

DRUGS (3)
  1. BUSULFAN [Suspect]
     Dosage: 3.2MGK PER DAY
     Dates: start: 20071101
  2. CYCLOPHOSPHAMIDE [Suspect]
     Dosage: 60MGK PER DAY
     Dates: start: 20071101
  3. DASATINIB [Concomitant]
     Dates: start: 20071001, end: 20071101

REACTIONS (1)
  - DRUG INEFFECTIVE [None]
